FAERS Safety Report 12010332 (Version 1)
Quarter: 2016Q1

REPORT INFORMATION
  Report Type: Spontaneous
  Country: FR (occurrence: FR)
  Receive Date: 20160205
  Receipt Date: 20160205
  Transmission Date: 20160526
  Serious: Yes (Hospitalization)
  Sender: FDA-Public Use
  Company Number: FR-PFIZER INC-2016058666

PATIENT
  Age: 72 Year
  Sex: Female

DRUGS (11)
  1. AFINITOR [Suspect]
     Active Substance: EVEROLIMUS
     Indication: INVASIVE DUCTAL BREAST CARCINOMA
     Dosage: 10 MG, 1X/DAY
     Route: 048
     Dates: start: 20150826, end: 20151123
  2. TILDIEM [Concomitant]
     Active Substance: DILTIAZEM HYDROCHLORIDE
  3. SOLUPRED /00016201/ [Concomitant]
     Active Substance: PREDNISOLONE
  4. FLECAINE [Concomitant]
     Active Substance: FLECAINIDE
  5. XGEVA [Concomitant]
     Active Substance: DENOSUMAB
  6. AROMASINE [Suspect]
     Active Substance: EXEMESTANE
     Indication: INVASIVE DUCTAL BREAST CARCINOMA
     Dosage: 25 MG, 1X/DAY IN THE EVENING
     Route: 048
     Dates: start: 20150826
  7. INEXIUM /01479302/ [Concomitant]
     Active Substance: ESOMEPRAZOLE MAGNESIUM
  8. THYROZOL [Concomitant]
     Active Substance: METHIMAZOLE
  9. OROCAL /00944201/ [Concomitant]
     Active Substance: CALCIUM CARBONATE
  10. TRIATEC /00885601/ [Concomitant]
     Active Substance: RAMIPRIL
  11. PRADAXA [Concomitant]
     Active Substance: DABIGATRAN ETEXILATE MESYLATE

REACTIONS (2)
  - Interstitial lung disease [Recovering/Resolving]
  - Dyspnoea [Recovering/Resolving]

NARRATIVE: CASE EVENT DATE: 201508
